FAERS Safety Report 8816585 (Version 1)
Quarter: 2012Q4

REPORT INFORMATION
  Report Type: Spontaneous
  Country: KR (occurrence: None)
  Receive Date: 20120928
  Receipt Date: 20120928
  Transmission Date: 20130627
  Serious: Yes (Other)
  Sender: FDA-Public Use
  Company Number: B0832744A

PATIENT
  Age: 58 Year
  Sex: Female

DRUGS (2)
  1. ACITRETIN [Suspect]
  2. ANTIHISTAMINE [Concomitant]

REACTIONS (1)
  - Capillary leak syndrome [None]
